FAERS Safety Report 14929800 (Version 1)
Quarter: 2018Q2

REPORT INFORMATION
  Report Type: Spontaneous
  Country: US (occurrence: US)
  Receive Date: 20180523
  Receipt Date: 20180523
  Transmission Date: 20180711
  Serious: No
  Sender: FDA-Public Use
  Company Number: US-TAKEDA-2018TUS017214

PATIENT
  Sex: Female

DRUGS (4)
  1. ROZEREM [Suspect]
     Active Substance: RAMELTEON
     Dosage: UNK, QD
     Route: 048
     Dates: start: 2012
  2. ROZEREM [Suspect]
     Active Substance: RAMELTEON
     Indication: INSOMNIA
     Dosage: 8 MG, QD
     Route: 048
     Dates: start: 2012
  3. ROZEREM [Suspect]
     Active Substance: RAMELTEON
     Dosage: UNK, QD
     Route: 048
     Dates: start: 2012, end: 2012
  4. ROZEREM [Suspect]
     Active Substance: RAMELTEON
     Dosage: UNK, QD
     Route: 048
     Dates: start: 2012

REACTIONS (7)
  - Wrong technique in product usage process [Unknown]
  - Withdrawal syndrome [Recovered/Resolved]
  - Hangover [Unknown]
  - Gait inability [Unknown]
  - Drug dependence [Unknown]
  - Somnolence [Unknown]
  - Fatigue [Unknown]
